FAERS Safety Report 7000008-6 (Version None)
Quarter: 2010Q3

REPORT INFORMATION
  Report Type: 
  Country: None (occurrence: None)
  Receive Date: 20100920
  Receipt Date: 20100603
  Transmission Date: 20110219
  Serious: Yes (Hospitalization)
  Sender: FDA-Public Use
  Company Number: US-ASTRAZENECA-2008UW13534

PATIENT
  Age: 19958 Day
  Sex: Female
  Weight: 84.4 kg

DRUGS (11)
  1. SEROQUEL [Suspect]
     Indication: SLEEP DISORDER
     Route: 048
     Dates: start: 20010701, end: 20060801
  2. SEROQUEL [Suspect]
     Indication: BIPOLAR DISORDER
     Route: 048
     Dates: start: 20010701, end: 20060801
  3. SEROQUEL [Suspect]
     Route: 048
     Dates: end: 20060811
  4. SEROQUEL [Suspect]
     Route: 048
     Dates: end: 20060811
  5. AMBIEN [Concomitant]
     Route: 048
     Dates: start: 20060811
  6. ASPIRIN [Concomitant]
     Route: 048
     Dates: start: 20060811
  7. LIPITOR [Concomitant]
     Indication: HYPERLIPIDAEMIA
     Route: 048
     Dates: start: 20060811
  8. LIPITOR [Concomitant]
     Indication: HYPERTRIGLYCERIDAEMIA
     Route: 048
     Dates: start: 20060811
  9. NEXIUM [Concomitant]
     Route: 048
     Dates: start: 20060811
  10. DEPAKOTE [Concomitant]
     Route: 048
     Dates: start: 20060811
  11. LISINOPRIL [Concomitant]
     Route: 048
     Dates: start: 20060811

REACTIONS (2)
  - HYPERGLYCAEMIA [None]
  - TYPE 2 DIABETES MELLITUS [None]
